FAERS Safety Report 8434670-8 (Version None)
Quarter: 2012Q2

REPORT INFORMATION
  Report Type: 
  Country: None (occurrence: None)
  Receive Date: 20120323
  Receipt Date: 20110707
  Transmission Date: 20120825
  Serious: Yes (Hospitalization)
  Sender: FDA-Public Use
  Company Number: 163-21880-11071123

PATIENT
  Age: 69 Year
  Sex: Male

DRUGS (3)
  1. REVLIMID [Suspect]
     Indication: LYMPHOMA
     Dosage: 15 MG, 1 IN 1 D. PO; DAILY, PO ; 10 MG, 1 IN 1 D, PO
     Route: 048
     Dates: start: 20110701
  2. REVLIMID [Suspect]
     Indication: LYMPHOMA
     Dosage: 15 MG, 1 IN 1 D. PO; DAILY, PO ; 10 MG, 1 IN 1 D, PO
     Route: 048
     Dates: start: 20110504
  3. REVLIMID [Suspect]
     Indication: LYMPHOMA
     Dosage: 15 MG, 1 IN 1 D. PO; DAILY, PO ; 10 MG, 1 IN 1 D, PO
     Route: 048
     Dates: start: 20110501

REACTIONS (1)
  - INCORRECT DOSE ADMINISTERED [None]
